FAERS Safety Report 10471210 (Version 1)
Quarter: 2014Q3

REPORT INFORMATION
  Report Type: Spontaneous
  Country: IT (occurrence: IT)
  Receive Date: 20140923
  Receipt Date: 20140923
  Transmission Date: 20150326
  Serious: Yes (Other)
  Sender: FDA-Public Use
  Company Number: IT-TEVA-510747ISR

PATIENT
  Age: 70 Year
  Sex: Male

DRUGS (1)
  1. METHOTREXATE [Suspect]
     Active Substance: METHOTREXATE
     Indication: CENTRAL NERVOUS SYSTEM LYMPHOMA
     Dosage: 10 MG TOTAL
     Dates: start: 20130101, end: 20130731

REACTIONS (2)
  - Renal failure acute [Unknown]
  - Blood creatinine increased [Unknown]

NARRATIVE: CASE EVENT DATE: 20130731
